FAERS Safety Report 8110902-0 (Version None)
Quarter: 2012Q1

REPORT INFORMATION
  Report Type: 
  Country: None (occurrence: None)
  Receive Date: 20120201
  Receipt Date: 20120201
  Transmission Date: 20120608
  Serious: No
  Sender: FDA-Public Use
  Company Number: None

PATIENT
  Sex: Female
  Weight: 60.3284 kg

DRUGS (2)
  1. LAMICTAL XR [Suspect]
     Indication: COMPLEX PARTIAL SEIZURES
     Dosage: 25MG 1QAM 2PM PO
     Route: 048
     Dates: start: 20111213
  2. LAMICTAL XR [Suspect]
     Indication: COMPLEX PARTIAL SEIZURES
     Dosage: 25MG 1QAM 2PM PO
     Route: 048
     Dates: start: 20110616

REACTIONS (1)
  - CONVULSION [None]
